FAERS Safety Report 6108169-8 (Version None)
Quarter: 2009Q1

REPORT INFORMATION
  Report Type: 
  Country: None (occurrence: None)
  Receive Date: 20090309
  Receipt Date: 20090223
  Transmission Date: 20090719
  Serious: Yes (Hospitalization, Other)
  Sender: FDA-Public Use
  Company Number: US-ROCHE-596635

PATIENT
  Age: 70 Year
  Sex: Female

DRUGS (4)
  1. XELODA [Suspect]
     Dosage: DOSAGE REGIMEN: SIX 500 MG DAILY FOR 7 DAYS ON AND 7 DAYS OFF
     Route: 065
  2. XELODA [Suspect]
     Route: 065
  3. CHEMOTHERAPY [Concomitant]
     Route: 042
  4. AVASTIN [Concomitant]

REACTIONS (4)
  - ABDOMINAL PAIN UPPER [None]
  - DIARRHOEA [None]
  - INTESTINAL PERFORATION [None]
  - MALIGNANT NEOPLASM PROGRESSION [None]
